FAERS Safety Report 8995944 (Version 1)
Quarter: 2013Q1

REPORT INFORMATION
  Report Type: Spontaneous
  Country: US (occurrence: US)
  Receive Date: 20130103
  Receipt Date: 20130103
  Transmission Date: 20140127
  Serious: Yes (Other)
  Sender: FDA-Public Use
  Company Number: CHPA2012US025814

PATIENT
  Age: 60 Year
  Sex: Female

DRUGS (2)
  1. EXCEDRIN EXTRA STRENGTH [Suspect]
     Indication: HEADACHE
     Dosage: 4 TO 6 DF DAILY
     Route: 048
     Dates: end: 2012
  2. EXCEDRIN EXTRA STRENGTH [Suspect]
     Indication: HEADACHE
     Dosage: UNK, UNK
     Route: 048

REACTIONS (7)
  - Osteoarthritis [Unknown]
  - Neck injury [Unknown]
  - Back injury [Unknown]
  - Spinal disorder [Unknown]
  - Muscle tightness [Unknown]
  - Epistaxis [Unknown]
  - Incorrect drug administration duration [Unknown]
